FAERS Safety Report 8111782-X (Version None)
Quarter: 2012Q1

REPORT INFORMATION
  Report Type: 
  Country: None (occurrence: None)
  Receive Date: 20120131
  Receipt Date: 20120119
  Transmission Date: 20120608
  Serious: Yes (Hospitalization, Other)
  Sender: FDA-Public Use
  Company Number: AE12-004

PATIENT
  Sex: Female

DRUGS (3)
  1. LIDOCAINE [Concomitant]
  2. MORPHINE [Concomitant]
  3. CHLORZOXAZONE [Suspect]
     Indication: BACK PAIN

REACTIONS (14)
  - ASTHENIA [None]
  - CHEST PAIN [None]
  - HEART RATE DECREASED [None]
  - DIZZINESS [None]
  - FEELING ABNORMAL [None]
  - HEPATIC ENZYME INCREASED [None]
  - VIRAL INFECTION [None]
  - REFUSAL OF TREATMENT BY PATIENT [None]
  - DYSPEPSIA [None]
  - BLOOD POTASSIUM DECREASED [None]
  - WHITE BLOOD CELL COUNT INCREASED [None]
  - IMPAIRED WORK ABILITY [None]
  - HYPERHIDROSIS [None]
  - VOMITING [None]
